FAERS Safety Report 9093891 (Version 1)
Quarter: 2013Q1

REPORT INFORMATION
  Report Type: Spontaneous
  Country: US (occurrence: None)
  Receive Date: 20130214
  Receipt Date: 20130214
  Transmission Date: 20140127
  Serious: Yes (Life-Threatening)
  Sender: FDA-Public Use
  Company Number: None

PATIENT
  Age: 68 Year
  Sex: Female
  Weight: 71.22 kg

DRUGS (2)
  1. MONTELUKAST [Suspect]
     Indication: ASTHMA
     Dosage: ONCE DAILY
     Route: 048
     Dates: start: 20121214, end: 20130208
  2. MONTELUKAST [Suspect]
     Indication: MULTIPLE ALLERGIES
     Dosage: ONCE DAILY
     Route: 048
     Dates: start: 20121214, end: 20130208

REACTIONS (2)
  - Nightmare [None]
  - Product substitution issue [None]
